FAERS Safety Report 20059169 (Version 1)
Quarter: 2021Q4

REPORT INFORMATION
  Report Type: Spontaneous
  Country: CN (occurrence: None)
  Receive Date: 20211111
  Receipt Date: 20211111
  Transmission Date: 20220303
  Serious: Yes (Other)
  Sender: FDA-Public Use
  Company Number: CN-ROCHE-2950681

PATIENT
  Age: 52 Year
  Sex: Female

DRUGS (12)
  1. XELODA [Suspect]
     Active Substance: CAPECITABINE
     Indication: Rectal adenocarcinoma
     Dosage: DAY1-14
     Route: 048
     Dates: start: 20211024
  2. XELODA [Suspect]
     Active Substance: CAPECITABINE
     Indication: Metastases to lymph nodes
     Dosage: MXELIRI: 28-JUN-2021, 23-JUL-2021, 20-AUG-2021, 09-SEP-2021, 01-OCT-2021
     Route: 048
  3. AVASTIN [Suspect]
     Active Substance: BEVACIZUMAB
     Indication: Rectal adenocarcinoma
     Dosage: 28-JUN-2021, 23-JUL-2021, 20-AUG-2021
     Route: 065
  4. AVASTIN [Suspect]
     Active Substance: BEVACIZUMAB
     Indication: Metastases to lymph nodes
  5. OXALIPLATIN [Concomitant]
     Active Substance: OXALIPLATIN
     Indication: Rectal adenocarcinoma
     Dosage: MFOLFOX6
     Dates: start: 20201228, end: 20210411
  6. OXALIPLATIN [Concomitant]
     Active Substance: OXALIPLATIN
     Indication: Metastases to lymph nodes
  7. LEUCOVORIN CALCIUM [Concomitant]
     Active Substance: LEUCOVORIN CALCIUM
     Indication: Rectal adenocarcinoma
     Dosage: MFOLFOX6
     Dates: start: 20201228, end: 20210411
  8. LEUCOVORIN CALCIUM [Concomitant]
     Active Substance: LEUCOVORIN CALCIUM
     Indication: Metastases to lymph nodes
  9. FLUOROURACIL [Concomitant]
     Active Substance: FLUOROURACIL
     Indication: Rectal adenocarcinoma
     Dosage: MFOLFOX6
     Dates: start: 20201228, end: 20210411
  10. FLUOROURACIL [Concomitant]
     Active Substance: FLUOROURACIL
     Indication: Metastases to lymph nodes
  11. IRINOTECAN [Concomitant]
     Active Substance: IRINOTECAN
     Indication: Rectal adenocarcinoma
     Dosage: MXELIRI: 28-JUN-2021, 23-JUL-2021, 20-AUG-2021, 09-SEP-2021, 01-OCT-2021
  12. IRINOTECAN [Concomitant]
     Active Substance: IRINOTECAN
     Indication: Metastases to lymph nodes

REACTIONS (4)
  - Myelosuppression [Unknown]
  - Duodenal ulcer [Unknown]
  - Haemoglobin decreased [Unknown]
  - Varices oesophageal [Unknown]
